FAERS Safety Report 21966668 (Version 1)
Quarter: 2023Q1

REPORT INFORMATION
  Report Type: Spontaneous
  Country: FR (occurrence: FR)
  Receive Date: 20230208
  Receipt Date: 20230208
  Transmission Date: 20230418
  Serious: Yes (Hospitalization, Other)
  Sender: FDA-Public Use
  Company Number: None

PATIENT
  Age: 41 Year
  Sex: Male
  Weight: 65.3 kg

DRUGS (2)
  1. HYDROCHLOROTHIAZIDE\IRBESARTAN [Interacting]
     Active Substance: HYDROCHLOROTHIAZIDE\IRBESARTAN
     Indication: Hypertension
     Dosage: 150 MG
     Route: 048
     Dates: end: 20221212
  2. INNOHEP [Interacting]
     Active Substance: TINZAPARIN SODIUM
     Indication: Artery dissection
     Dosage: 10000 IU
     Route: 058
     Dates: start: 20221202, end: 20221210

REACTIONS (1)
  - Hyperkalaemia [Recovered/Resolved]
